FAERS Safety Report 21750313 (Version 1)
Quarter: 2022Q4

REPORT INFORMATION
  Report Type: Spontaneous
  Country: US (occurrence: US)
  Receive Date: 20221219
  Receipt Date: 20221219
  Transmission Date: 20230113
  Serious: No
  Sender: FDA-Public Use
  Company Number: US-PRIMUS-2022-US-025796

PATIENT
  Age: 54 Year
  Sex: Female

DRUGS (1)
  1. IMPOYZ [Suspect]
     Active Substance: CLOBETASOL PROPIONATE
     Indication: Product used for unknown indication
     Dosage: APPLY TOPICALLY TO AFFECTED AREAS TWICE DAILY FOR UP TO TWO WEEKS A MONTH MAXIMUM, THEN TAKE ONE WEE
     Route: 061

REACTIONS (1)
  - Drug ineffective [Unknown]
